FAERS Safety Report 10275532 (Version 1)
Quarter: 2014Q2

REPORT INFORMATION
  Report Type: Spontaneous
  Country: US (occurrence: None)
  Receive Date: 20140630
  Receipt Date: 20140630
  Transmission Date: 20141212
  Serious: Yes (Hospitalization)
  Sender: FDA-Public Use
  Company Number: None

PATIENT
  Age: 56 Year
  Sex: Female
  Weight: 113.4 kg

DRUGS (1)
  1. LISINOPRIL/HCTZ 20/12.5 LUPIN [Suspect]
     Indication: HYPERTENSION
     Dosage: 1 PILL  TWICE DAILY TAKEN BY MOUTH
     Route: 048
     Dates: start: 19990630, end: 20140520

REACTIONS (5)
  - Swelling face [None]
  - Endotracheal intubation complication [None]
  - Pneumonia [None]
  - Impaired work ability [None]
  - Hypersensitivity [None]
